FAERS Safety Report 6112110-1 (Version None)
Quarter: 2009Q1

REPORT INFORMATION
  Report Type: 
  Country: None (occurrence: None)
  Receive Date: 20090311
  Receipt Date: 20090303
  Transmission Date: 20090719
  Serious: Yes (Hospitalization)
  Sender: FDA-Public Use
  Company Number: US-GENENTECH-278560

PATIENT
  Sex: Male

DRUGS (3)
  1. RITUXIMAB [Suspect]
     Indication: LYMPHOMA
     Dosage: 619 MG, UNK
     Route: 042
     Dates: start: 20090126, end: 20090202
  2. VELCADE [Suspect]
     Indication: LYMPHOMA
     Dosage: 2.64 MG, UNK
     Route: 042
     Dates: start: 20090126, end: 20090202
  3. BENDAMUSTINE [Suspect]
     Indication: LYMPHOMA
     Dosage: 149 MG, UNK
     Route: 042
     Dates: start: 20090126, end: 20090127

REACTIONS (1)
  - FEBRILE NEUTROPENIA [None]
